FAERS Safety Report 7193082-8 (Version None)
Quarter: 2010Q4

REPORT INFORMATION
  Report Type: 
  Country: None (occurrence: None)
  Receive Date: 20101223
  Receipt Date: 20100831
  Transmission Date: 20110411
  Serious: Yes (Other)
  Sender: FDA-Public Use
  Company Number: US-AMGEN-KDL433069

PATIENT

DRUGS (1)
  1. ENBREL [Suspect]
     Indication: RHEUMATOID ARTHRITIS
     Dosage: 50 MG, QWK
     Route: 058
     Dates: start: 20090621

REACTIONS (8)
  - ARTHRALGIA [None]
  - BRONCHITIS [None]
  - INJECTION SITE PAIN [None]
  - JOINT SWELLING [None]
  - OROPHARYNGEAL DISCOMFORT [None]
  - PARAESTHESIA [None]
  - RASH PAPULAR [None]
  - VISUAL IMPAIRMENT [None]
